FAERS Safety Report 5603285-9 (Version None)
Quarter: 2008Q1

REPORT INFORMATION
  Report Type: 
  Country: None (occurrence: None)
  Receive Date: 20080122
  Receipt Date: 20080111
  Transmission Date: 20080703
  Serious: Yes (Hospitalization)
  Sender: FDA-Public Use
  Company Number: E2020-02117-SPO-FR

PATIENT
  Age: 85 Year
  Sex: Female

DRUGS (3)
  1. ARICEPT [Suspect]
     Indication: DEMENTIA ALZHEIMER'S TYPE
     Dosage: 5 MG, 1 IN 1 D, ORAL
     Route: 048
  2. AVANDIA [Suspect]
     Dosage: 4 MG, ORAL
     Route: 048
     Dates: start: 20071025, end: 20071211
  3. PREVISCAN (FLUINDIONE) [Concomitant]

REACTIONS (3)
  - DYSPNOEA [None]
  - FACE OEDEMA [None]
  - PULMONARY EMBOLISM [None]
